FAERS Safety Report 25229803 (Version 1)
Quarter: 2025Q2

REPORT INFORMATION
  Report Type: Spontaneous
  Country: US (occurrence: US)
  Receive Date: 20250423
  Receipt Date: 20250423
  Transmission Date: 20250716
  Serious: No
  Sender: BIOFRONTERA BIOSCIENCE
  Company Number: US-Biofrontera-2025BIO00044

PATIENT
  Age: 62 Year
  Sex: Female

DRUGS (5)
  1. AMELUZ [Suspect]
     Active Substance: AMINOLEVULINIC ACID HYDROCHLORIDE
     Indication: Actinic keratosis
     Route: 050
     Dates: start: 20250306, end: 20250306
  2. DEVICE [Suspect]
     Active Substance: DEVICE
     Indication: Actinic keratosis
     Dates: start: 20250306, end: 20250306
  3. AMITRIPTYLINE [Concomitant]
     Active Substance: AMITRIPTYLINE
  4. ROSUVASTATIN [Concomitant]
     Active Substance: ROSUVASTATIN
     Indication: Hypercholesterolaemia
  5. TIROSINT [Concomitant]
     Active Substance: LEVOTHYROXINE SODIUM
     Indication: Hypothyroidism

REACTIONS (2)
  - Application site papules [Unknown]
  - Application site exfoliation [Unknown]

NARRATIVE: CASE EVENT DATE: 20250301
